FAERS Safety Report 15476756 (Version 1)
Quarter: 2018Q4

REPORT INFORMATION
  Report Type: Spontaneous
  Country: GB (occurrence: GB)
  Receive Date: 20181009
  Receipt Date: 20181009
  Transmission Date: 20190205
  Serious: Yes (Hospitalization)
  Sender: FDA-Public Use
  Company Number: GB-REGULIS-2055810

PATIENT
  Age: 73 Year
  Sex: Female

DRUGS (7)
  1. METHYLENE BLUE. [Suspect]
     Active Substance: METHYLENE BLUE
     Indication: BIOPSY LYMPH GLAND
     Route: 058
     Dates: start: 20180913, end: 20180913
  2. MORPHINE SULFATE. [Concomitant]
     Active Substance: MORPHINE SULFATE
  3. DICLOFENAC [Concomitant]
     Active Substance: DICLOFENAC
  4. VERAPAMIL [Concomitant]
     Active Substance: VERAPAMIL HYDROCHLORIDE
  5. PARACETAMOL [Concomitant]
     Active Substance: ACETAMINOPHEN
  6. FENTANYL. [Concomitant]
     Active Substance: FENTANYL
  7. PROPOFOL. [Concomitant]
     Active Substance: PROPOFOL

REACTIONS (2)
  - Anaphylactoid reaction [Recovering/Resolving]
  - Off label use [None]
